FAERS Safety Report 8576711-3 (Version None)
Quarter: 2012Q3

REPORT INFORMATION
  Report Type: 
  Country: None (occurrence: None)
  Receive Date: 20120807
  Receipt Date: 20120308
  Transmission Date: 20120928
  Serious: Yes (Other)
  Sender: FDA-Public Use
  Company Number: JP-GLAXOSMITHKLINE-B0787576A

PATIENT
  Sex: Male

DRUGS (2)
  1. UNKNOWN DRUG [Concomitant]
     Route: 065
  2. FLUTICASONE PROPIONATE/SALMETEROL [Suspect]
     Indication: ASTHMA
     Route: 055

REACTIONS (3)
  - ARRHYTHMIA [None]
  - HYPOKALAEMIA [None]
  - EXTRASYSTOLES [None]
